FAERS Safety Report 18035477 (Version 4)
Quarter: 2020Q3

REPORT INFORMATION
  Report Type: Report from Study
  Country: US (occurrence: US)
  Receive Date: 20200717
  Receipt Date: 20200812
  Transmission Date: 20201103
  Serious: Yes (Death, Hospitalization, Other)
  Sender: FDA-Public Use
  Company Number: US-BRISTOL-MYERS SQUIBB COMPANY-BMS-2020-056399

PATIENT
  Age: 28 Year
  Sex: Female
  Weight: 79.2 kg

DRUGS (38)
  1. CARBOPLATIN. [Suspect]
     Active Substance: CARBOPLATIN
     Indication: TRIPLE NEGATIVE BREAST CANCER
     Dosage: AUC 6 Q3W
     Route: 042
     Dates: start: 20200414, end: 20200505
  2. VITAMIN D3 [Concomitant]
     Active Substance: CHOLECALCIFEROL
     Indication: PRODUCT USED FOR UNKNOWN INDICATION
     Dosage: 5 MCG (1000 UT) TABLET TAKE 2,000 DAILY
     Route: 048
  3. LEVOTHYROXINE. [Concomitant]
     Active Substance: LEVOTHYROXINE
     Indication: HYPOTHYROIDISM
     Dosage: 75 MICROGRAM, QD
     Route: 048
     Dates: start: 201705
  4. MORPHINE [Concomitant]
     Active Substance: MORPHINE
     Indication: CANCER PAIN
     Dosage: 15 MILLIGRAM, TID
     Route: 048
     Dates: start: 20200708
  5. SERTRALINE [Concomitant]
     Active Substance: SERTRALINE HYDROCHLORIDE
     Indication: ANXIETY
     Dosage: 50 MILLIGRAM, QD
     Route: 048
     Dates: start: 20200707
  6. TYLENOL [Concomitant]
     Active Substance: ACETAMINOPHEN
     Indication: HEADACHE
     Dosage: UNK
     Route: 065
     Dates: start: 20200419
  7. METFORMIN HCL [Concomitant]
     Active Substance: METFORMIN HYDROCHLORIDE
     Indication: TYPE 2 DIABETES MELLITUS
     Dosage: 1000 MILLIGRAM, BID
     Route: 065
     Dates: start: 201905
  8. DULCOLAX (BISACODYL) [Concomitant]
     Active Substance: BISACODYL
     Indication: CONSTIPATION
     Dosage: 10 MILLIGRAM, PRN
     Route: 065
     Dates: start: 20200711
  9. PANTOPRAZOLE [Concomitant]
     Active Substance: PANTOPRAZOLE
     Indication: GASTROOESOPHAGEAL REFLUX DISEASE
     Dosage: 40 MILLIGRAM, QD
     Route: 065
     Dates: start: 20200702
  10. NIVOLUMAB [Suspect]
     Active Substance: NIVOLUMAB
     Indication: TRIPLE NEGATIVE BREAST CANCER
     Dosage: 360 MILLIGRAM, Q3WK
     Route: 042
     Dates: start: 20200414, end: 20200505
  11. LORAZEPAM. [Concomitant]
     Active Substance: LORAZEPAM
     Indication: ANXIETY
     Dosage: 0.5 MILLIGRAM, BID, 2 TIMES UPTO 10 DAYS
     Route: 048
     Dates: start: 20200713
  12. MORPHINE [Concomitant]
     Active Substance: MORPHINE
     Indication: MYALGIA
     Dosage: 2 MILLIGRAM
     Route: 042
     Dates: start: 20200710
  13. PROCHLORPERAZINE. [Concomitant]
     Active Substance: PROCHLORPERAZINE
     Indication: NAUSEA
     Dosage: 10 MG TABLET TAKE 1 TABLET BY
     Route: 048
  14. MEMANTINE. [Concomitant]
     Active Substance: MEMANTINE
     Indication: MALIGNANT NEOPLASM PROGRESSION
     Dosage: 5 MILLIGRAM, QD FOR 7 DAYS
     Route: 065
     Dates: start: 20200710
  15. MEMANTINE. [Concomitant]
     Active Substance: MEMANTINE
     Dosage: 5 MILLIGRAM, BID FOR 7 DAYS
     Route: 065
  16. MEMANTINE. [Concomitant]
     Active Substance: MEMANTINE
     Dosage: 10 MILLIGRAM AM
     Route: 065
  17. MEMANTINE. [Concomitant]
     Active Substance: MEMANTINE
     Dosage: 5 MILLIGRAM PM FOR 7 DAYS
     Route: 065
  18. XARELTO [Concomitant]
     Active Substance: RIVAROXABAN
     Indication: COVID-19
  19. SENNA [SENNA ALEXANDRINA] [Concomitant]
     Active Substance: SENNA LEAF
     Indication: CONSTIPATION
     Dosage: 8.6 MILLIGRAM, BID, 1 TABLET DAILY AS NEED
     Route: 048
     Dates: start: 20200414
  20. COMPAZINE [Concomitant]
     Active Substance: PROCHLORPERAZINE MALEATE
     Indication: NAUSEA
     Dosage: 10 MILLIGRAM, Q6H
     Route: 065
     Dates: start: 20200414
  21. LIDOCAINE VISCOUS [Concomitant]
     Active Substance: LIDOCAINE HYDROCHLORIDE
     Indication: PRODUCT USED FOR UNKNOWN INDICATION
     Dosage: 80 MILLILITER
     Route: 065
  22. SIMETHICONE (DIMETHICONE) [Concomitant]
     Active Substance: DIMETHICONE
     Indication: PAIN
     Dosage: 80 MILLILITER AFTER EATING, SWISH 2 TEA SPOON FOR 1 MIN THEN SPLIT, Q4?6 HRS
     Route: 048
     Dates: start: 20200419
  23. TRAMADOL. [Concomitant]
     Active Substance: TRAMADOL
     Indication: MYALGIA
     Dosage: UNK
     Route: 065
     Dates: start: 20200419
  24. XARELTO [Concomitant]
     Active Substance: RIVAROXABAN
     Indication: EMBOLISM VENOUS
     Dosage: 10 MILLIGRAM TAKE 1 TABLET BY MOUTH WITH DINNER
     Route: 065
  25. MIRALAX [Concomitant]
     Active Substance: POLYETHYLENE GLYCOL 3350
     Indication: CONSTIPATION
     Dosage: 17 GRAM, QD
     Route: 065
     Dates: start: 20200327
  26. BENADRYL [Concomitant]
     Active Substance: DIPHENHYDRAMINE HYDROCHLORIDE
     Indication: PRODUCT USED FOR UNKNOWN INDICATION
     Dosage: 80 MILLILITER
     Route: 065
  27. ALUMINIUM MAGNESIUM HYDROXIDR [Concomitant]
     Indication: PRODUCT USED FOR UNKNOWN INDICATION
     Route: 065
  28. DEXAMETHASONE. [Concomitant]
     Active Substance: DEXAMETHASONE
     Indication: PRODUCT USED FOR UNKNOWN INDICATION
     Dosage: 2 MILLIGRAM, BID
     Route: 048
  29. OXYCODONE [Concomitant]
     Active Substance: OXYCODONE
     Indication: CANCER PAIN
     Dosage: 5 MG TABLETTAKE 2 TABLETS BY MOUTH EVERY 4 HOURS AS
     Route: 048
  30. PROTONIX [Concomitant]
     Active Substance: PANTOPRAZOLE SODIUM
     Indication: PRODUCT USED FOR UNKNOWN INDICATION
     Dosage: 40 MG TAB DR TABLET TAKE 1 TABLET BY MOUTH DAILY
     Route: 048
  31. PROCHLORPERAZINE. [Concomitant]
     Active Substance: PROCHLORPERAZINE
     Indication: VOMITING
  32. IBUPROFEN. [Concomitant]
     Active Substance: IBUPROFEN
     Indication: HEADACHE
     Dosage: UNK
     Route: 065
     Dates: start: 20200419
  33. ZOFRAN [Concomitant]
     Active Substance: ONDANSETRON HYDROCHLORIDE
     Indication: NAUSEA
     Dosage: 4 MILLIGRAM
     Route: 065
     Dates: start: 20200419
  34. OXYCODONE [Concomitant]
     Active Substance: OXYCODONE
     Dosage: 10?20 MG, Q3H, PRN
     Route: 048
     Dates: start: 20200711
  35. FAMOTIDINE. [Concomitant]
     Active Substance: FAMOTIDINE
     Indication: GASTROOESOPHAGEAL REFLUX DISEASE
     Dosage: 20 MILLIGRAM, Q12H
     Route: 065
     Dates: start: 20200327
  36. GABAPENTIN. [Concomitant]
     Active Substance: GABAPENTIN
     Indication: MYALGIA
     Dosage: 100 MILLIGRAM, TID
     Route: 065
     Dates: start: 20200711
  37. MEMANTINE. [Concomitant]
     Active Substance: MEMANTINE
     Dosage: 5 MILLIGRAM PM FOR 7 DAYS
     Route: 065
  38. XARELTO [Concomitant]
     Active Substance: RIVAROXABAN
     Indication: DISEASE PROGRESSION
     Dosage: 30 MILLIGRAM, QD FOR 30 DAYS
     Route: 065
     Dates: start: 20200711

REACTIONS (2)
  - COVID-19 [Fatal]
  - Pneumonia pneumococcal [Unknown]

NARRATIVE: CASE EVENT DATE: 202007
